FAERS Safety Report 7373213-7 (Version None)
Quarter: 2011Q1

REPORT INFORMATION
  Report Type: 
  Country: None (occurrence: None)
  Receive Date: 20110324
  Receipt Date: 20110309
  Transmission Date: 20110831
  Serious: Yes (Other)
  Sender: FDA-Public Use
  Company Number: MX-GENENTECH-315281

PATIENT
  Sex: Female

DRUGS (2)
  1. GENOXAL [Concomitant]
     Indication: SYSTEMIC LUPUS ERYTHEMATOSUS
     Dosage: 50 MG, UNK
     Route: 048
  2. MABTHERA [Suspect]
     Indication: SLE ARTHRITIS
     Dosage: 700 MG, UNK
     Route: 042
     Dates: start: 20110224, end: 20110224

REACTIONS (4)
  - VOMITING [None]
  - HYPOTHERMIA [None]
  - HYPERTENSION [None]
  - NAUSEA [None]
